FAERS Safety Report 19586096 (Version 3)
Quarter: 2021Q4

REPORT INFORMATION
  Report Type: Spontaneous
  Country: CO (occurrence: CO)
  Receive Date: 20210721
  Receipt Date: 20211011
  Transmission Date: 20220303
  Serious: No
  Sender: FDA-Public Use
  Company Number: CO-AMGEN-COLSP2021109379

PATIENT
  Age: 81 Year
  Sex: Female

DRUGS (4)
  1. PEGFILGRASTIM [Suspect]
     Active Substance: PEGFILGRASTIM
     Indication: Product used for unknown indication
     Dosage: 6 MILLIGRAM
     Route: 058
  2. DOXORUBICIN HYDROCHLORIDE [Concomitant]
     Active Substance: DOXORUBICIN HYDROCHLORIDE
     Indication: B-cell lymphoma
     Dosage: 39 MILLIGRAM 1 INFUSION ON 3 MINUTES
     Route: 042
  3. CYCLOPHOSPHAMIDE [Concomitant]
     Active Substance: CYCLOPHOSPHAMIDE
     Indication: B-cell lymphoma
     Dosage: 636 MILLIGRAM  DAY 1 INFUSION ON 3 MINUTES
     Route: 042
  4. VINCRISTINE SULFATE [Concomitant]
     Active Substance: VINCRISTINE SULFATE
     Indication: B-cell lymphoma
     Dosage: 1 MILLIGRAM  1 DAY BOLUS
     Route: 042

REACTIONS (2)
  - Device use error [Recovered/Resolved]
  - Device adhesion issue [Recovered/Resolved]

NARRATIVE: CASE EVENT DATE: 20210616
